FAERS Safety Report 11695969 (Version 1)
Quarter: 2015Q4

REPORT INFORMATION
  Report Type: Spontaneous
  Country: US (occurrence: None)
  Receive Date: 20151103
  Receipt Date: 20151103
  Transmission Date: 20160304
  Serious: Yes (Disabling)
  Sender: FDA-Public Use
  Company Number: None

PATIENT
  Age: 59 Year
  Sex: Female
  Weight: 68.04 kg

DRUGS (6)
  1. CARBAMAZEPINE. [Concomitant]
     Active Substance: CARBAMAZEPINE
  2. CLINDAMYSIN [Suspect]
     Active Substance: CLINDAMYCIN PHOSPHATE
     Indication: DENTAL IMPRESSION PROCEDURE
     Dosage: 1 PILL
     Route: 048
     Dates: start: 20151001, end: 20151006
  3. LEVIOTHROXIN/SYNTHROID [Concomitant]
  4. CALCIUM [Concomitant]
     Active Substance: CALCIUM
  5. VITAMIN D [Concomitant]
     Active Substance: CHOLECALCIFEROL
  6. SCHIFF MOVE FREE [Concomitant]
     Active Substance: CHONDROITIN SULFATE A\GLUCOSAMINE

REACTIONS (13)
  - Visual impairment [None]
  - Headache [None]
  - Confusional state [None]
  - Tinnitus [None]
  - Oral candidiasis [None]
  - Mouth ulceration [None]
  - Somnolence [None]
  - Balance disorder [None]
  - Irritability [None]
  - Nightmare [None]
  - Hypoaesthesia oral [None]
  - Clostridium difficile infection [None]
  - Vulvovaginal mycotic infection [None]

NARRATIVE: CASE EVENT DATE: 20151001
